FAERS Safety Report 5625067-4 (Version None)
Quarter: 2008Q1

REPORT INFORMATION
  Report Type: 
  Country: None (occurrence: None)
  Receive Date: 20080213
  Receipt Date: 20080201
  Transmission Date: 20080703
  Serious: Yes (Other)
  Sender: FDA-Public Use
  Company Number: AU-PFIZER INC-2008011088

PATIENT
  Sex: Male

DRUGS (2)
  1. NORVASC [Suspect]
  2. ODRIK [Concomitant]

REACTIONS (2)
  - HEADACHE [None]
  - PNEUMONIA [None]
